FAERS Safety Report 9189930 (Version 1)
Quarter: 2013Q1

REPORT INFORMATION
  Report Type: Spontaneous
  Country: US (occurrence: None)
  Receive Date: 20130322
  Receipt Date: 20130322
  Transmission Date: 20140127
  Serious: Yes (Other)
  Sender: FDA-Public Use
  Company Number: 1640226

PATIENT
  Sex: 0

DRUGS (2)
  1. CYTARABINE [Suspect]
  2. DAUNORUBICIN [Suspect]
     Indication: ACUTE MYELOID LEUKAEMIA

REACTIONS (10)
  - Erythema [None]
  - Oedema [None]
  - Papule [None]
  - Febrile neutropenia [None]
  - Arthralgia [None]
  - Myalgia [None]
  - Pleurisy [None]
  - Dysuria [None]
  - Mouth ulceration [None]
  - Neutrophilic dermatosis [None]
